FAERS Safety Report 6959137-5 (Version None)
Quarter: 2010Q3

REPORT INFORMATION
  Report Type: 
  Country: None (occurrence: None)
  Receive Date: 20100827
  Receipt Date: 20100813
  Transmission Date: 20110219
  Serious: Yes (Other)
  Sender: FDA-Public Use
  Company Number: 017197

PATIENT
  Sex: Female
  Weight: 66 kg

DRUGS (5)
  1. CIMZIA [Suspect]
     Indication: CROHN'S DISEASE
     Dosage: (SUBCUTANEOUS)
     Route: 058
     Dates: start: 20100301
  2. AZATHIOPRINE [Concomitant]
  3. LEVOTHYROXINE [Concomitant]
  4. ZOFRAN [Concomitant]
  5. TRAMADOL HCL [Concomitant]

REACTIONS (5)
  - FURUNCLE [None]
  - IMMUNE SYSTEM DISORDER [None]
  - INFECTION [None]
  - MOUTH HAEMORRHAGE [None]
  - STAPHYLOCOCCAL INFECTION [None]
